FAERS Safety Report 10189503 (Version 1)
Quarter: 2014Q2

REPORT INFORMATION
  Report Type: Report from Study
  Country: AT (occurrence: AT)
  Receive Date: 20140522
  Receipt Date: 20140522
  Transmission Date: 20141212
  Serious: Yes (Other)
  Sender: FDA-Public Use
  Company Number: PHHY2014AT062006

PATIENT
  Age: 61 Year
  Sex: Female
  Weight: 64 kg

DRUGS (4)
  1. AMN107 [Suspect]
     Indication: CHRONIC MYELOID LEUKAEMIA
     Dosage: 300 MG, BID
     Route: 048
     Dates: start: 20101116
  2. ACEMIN [Concomitant]
     Indication: HYPERTONIA
     Dosage: 10 MG, BID
  3. CONCOR [Concomitant]
     Indication: HYPERTONIA
     Dosage: 2.5 MG, BID
  4. SIMVASTATIN [Concomitant]
     Indication: HYPERTONIA
     Dosage: 20 MG, QD
     Dates: start: 20101119

REACTIONS (1)
  - Chest pain [Recovered/Resolved]
